FAERS Safety Report 9707305 (Version 1)
Quarter: 2013Q4

REPORT INFORMATION
  Report Type: Spontaneous
  Country: US (occurrence: None)
  Receive Date: 20131122
  Receipt Date: 20131122
  Transmission Date: 20140711
  Serious: No
  Sender: FDA-Public Use
  Company Number: None

PATIENT
  Age: 58 Year
  Sex: Male
  Weight: 68.2 kg

DRUGS (3)
  1. RUXOLITINIB [Suspect]
     Indication: MYELOFIBROSIS
     Route: 048
     Dates: start: 20131002
  2. RUXOLITINIB [Suspect]
     Route: 048
     Dates: start: 20131002
  3. DEFERASIROX [Suspect]
     Route: 048
     Dates: start: 20131023

REACTIONS (2)
  - Aspartate aminotransferase increased [None]
  - Alanine aminotransferase increased [None]
